FAERS Safety Report 5826841-1 (Version None)
Quarter: 2008Q3

REPORT INFORMATION
  Report Type: 
  Country: None (occurrence: None)
  Receive Date: 20080725
  Receipt Date: 20080530
  Transmission Date: 20090109
  Serious: Yes (Hospitalization)
  Sender: FDA-Public Use
  Company Number: 2008US001156

PATIENT
  Age: 50 Year
  Sex: Female
  Weight: 104.3 kg

DRUGS (2)
  1. AMEVIVE [Suspect]
     Indication: PSORIASIS
     Dosage: 15 MG, WEEKLY, INTRAMUSCULAR
     Route: 030
     Dates: start: 20041111, end: 20050221
  2. METOPROLOL TARTRATE [Concomitant]

REACTIONS (4)
  - ANGINA PECTORIS [None]
  - CORONARY ARTERY DISEASE [None]
  - DIZZINESS [None]
  - PALPITATIONS [None]
